FAERS Safety Report 7072926-4 (Version None)
Quarter: 2010Q4

REPORT INFORMATION
  Report Type: 
  Country: None (occurrence: None)
  Receive Date: 20101028
  Receipt Date: 20101028
  Transmission Date: 20110411
  Serious: Yes (Hospitalization)
  Sender: FDA-Public Use
  Company Number: None

PATIENT
  Age: 26 Year
  Sex: Female
  Weight: 70.3075 kg

DRUGS (3)
  1. ABILIFY [Suspect]
     Indication: BIPOLAR DISORDER
     Dosage: 5 MG DAILY PO; 10 MG DAILY  PO
     Route: 048
     Dates: start: 20050415, end: 20101026
  2. ABILIFY [Suspect]
     Indication: PSYCHOTIC DISORDER
     Dosage: 5 MG DAILY PO; 10 MG DAILY  PO
     Route: 048
     Dates: start: 20050415, end: 20101026
  3. ABILIFY [Suspect]

REACTIONS (5)
  - ALOPECIA [None]
  - AMNESIA [None]
  - DEMENTIA [None]
  - DRUG EXPOSURE DURING PREGNANCY [None]
  - LOSS OF CONSCIOUSNESS [None]
